FAERS Safety Report 7431988-2 (Version None)
Quarter: 2011Q2

REPORT INFORMATION
  Report Type: 
  Country: None (occurrence: None)
  Receive Date: 20110422
  Receipt Date: 20110415
  Transmission Date: 20111010
  Serious: No
  Sender: FDA-Public Use
  Company Number: US-B.I. PHARMACEUTICALS,INC./RIDGEFIELD-2011-BP-03609BP

PATIENT
  Sex: Male

DRUGS (4)
  1. COQ10 [Concomitant]
     Indication: PROPHYLAXIS
  2. TOPROL-XL [Concomitant]
     Indication: ATRIAL FIBRILLATION
  3. PRADAXA [Suspect]
     Indication: ATRIAL FIBRILLATION
     Dosage: 300 MG
     Route: 048
     Dates: start: 20110101
  4. VITAMIN D [Concomitant]
     Indication: PROPHYLAXIS

REACTIONS (6)
  - FOREIGN BODY [None]
  - ODYNOPHAGIA [None]
  - DISCOMFORT [None]
  - THROAT IRRITATION [None]
  - ABDOMINAL DISCOMFORT [None]
  - OROPHARYNGEAL PAIN [None]
